FAERS Safety Report 10643193 (Version 1)
Quarter: 2014Q4

REPORT INFORMATION
  Report Type: Spontaneous
  Country: US (occurrence: None)
  Receive Date: 20141121
  Receipt Date: 20141121
  Transmission Date: 20150529
  Serious: No
  Sender: FDA-Public Use
  Company Number: 163-10004-14071994

PATIENT
  Age: 48 Year
  Sex: Male

DRUGS (4)
  1. OTEZLA [Suspect]
     Active Substance: APREMILAST
     Indication: PSORIATIC ARTHROPATHY
     Route: 048
     Dates: start: 20140627
  2. ALEVE (NAPROXEN SODIUM) [Concomitant]
  3. TESTOSTERONE. [Concomitant]
     Active Substance: TESTOSTERONE
  4. CYPIONATE [Concomitant]
     Active Substance: ESTRADIOL CYPIONATE

REACTIONS (2)
  - Myalgia [None]
  - Abnormal dreams [None]

NARRATIVE: CASE EVENT DATE: 20140630
